FAERS Safety Report 5248954-8 (Version None)
Quarter: 2007Q1

REPORT INFORMATION
  Report Type: 
  Country: None (occurrence: None)
  Receive Date: 20070222
  Receipt Date: 20070210
  Transmission Date: 20070707
  Serious: Yes (Hospitalization)
  Sender: FDA-Public Use
  Company Number: 236410

PATIENT
  Age: 49 Year
  Sex: Female
  Weight: 78.9 kg

DRUGS (9)
  1. XOLAIR [Suspect]
     Indication: ASTHMA
     Dosage: Q4W
     Dates: start: 20060501
  2. INSULIN [Concomitant]
  3. METFORMIN HCL [Concomitant]
  4. NORVASC [Concomitant]
  5. XANAX [Concomitant]
  6. COMBIVENT [Concomitant]
  7. ALBUTEROL (ALBUTEROL/ALBUTEROL SULFATE) [Concomitant]
  8. POTASSIUM ACETATE [Concomitant]
  9. ADVAIR DISKUS 100/50 [Concomitant]

REACTIONS (3)
  - ASTHMA [None]
  - DIABETES MELLITUS [None]
  - NASOPHARYNGITIS [None]
